FAERS Safety Report 4377926-0 (Version None)
Quarter: 2004Q2

REPORT INFORMATION
  Report Type: 
  Country: None (occurrence: None)
  Receive Date: 20040601
  Receipt Date: 20040217
  Transmission Date: 20050107
  Serious: No
  Sender: FDA-Public Use
  Company Number: WAES 0402USA01569

PATIENT
  Age: 59 Year
  Sex: Female
  Weight: 100.6985 kg

DRUGS (5)
  1. ZETIA [Suspect]
     Indication: HYPERCHOLESTEROLAEMIA
     Dosage: 10 MG/DAILY/PO
     Route: 048
     Dates: start: 20031106, end: 20030101
  2. ZETIA [Suspect]
     Indication: HYPERCHOLESTEROLAEMIA
     Dosage: 10 MG/DAILY/PO
     Route: 048
     Dates: start: 20030804, end: 20030810
  3. ASPIRIN [Concomitant]
  4. INSULIN, ISOPHANE [Concomitant]
  5. VITAMIN B COMPLEX CAP [Concomitant]

REACTIONS (1)
  - HEADACHE [None]
